FAERS Safety Report 10553173 (Version 2)
Quarter: 2014Q4

REPORT INFORMATION
  Report Type: Spontaneous
  Country: KR (occurrence: KR)
  Receive Date: 20141030
  Receipt Date: 20141030
  Transmission Date: 20150529
  Serious: Yes (Death, Hospitalization)
  Sender: FDA-Public Use
  Company Number: KR-ROCHE-1477755

PATIENT
  Sex: Female

DRUGS (1)
  1. ACTEMRA [Suspect]
     Active Substance: TOCILIZUMAB
     Indication: RHEUMATOID ARTHRITIS
     Dosage: UNCERTAINTY
     Route: 042

REACTIONS (2)
  - Pneumonia [Fatal]
  - Cardiac failure [Fatal]

NARRATIVE: CASE EVENT DATE: 2014
